FAERS Safety Report 18486288 (Version 2)
Quarter: 2020Q4

REPORT INFORMATION
  Report Type: Report from Study
  Country: IT (occurrence: IT)
  Receive Date: 20201110
  Receipt Date: 20201112
  Transmission Date: 20210114
  Serious: Yes (Other)
  Sender: FDA-Public Use
  Company Number: IT-TEVA-2020-IT-1845960

PATIENT
  Age: 53 Year
  Sex: Male

DRUGS (7)
  1. LASIX [Concomitant]
     Active Substance: FUROSEMIDE
  2. CARBOPLATIN. [Suspect]
     Active Substance: CARBOPLATIN
     Indication: LUNG NEOPLASM
     Route: 042
  3. TRIATEC [RAMIPRIL] [Concomitant]
     Active Substance: RAMIPRIL
  4. ISOPTIN [Concomitant]
     Active Substance: VERAPAMIL HYDROCHLORIDE
  5. ZYLORIC [Concomitant]
     Active Substance: ALLOPURINOL
  6. PANTORC [Concomitant]
     Active Substance: PANTOPRAZOLE SODIUM
  7. TRIMBOW 87 MICROGRAMS/5 MICROGRAMS/9 MICROGRAMS PRESSURISED INHALATION [Concomitant]

REACTIONS (3)
  - Dyspnoea [Recovering/Resolving]
  - Urticaria [Recovering/Resolving]
  - Drug hypersensitivity [Recovering/Resolving]

NARRATIVE: CASE EVENT DATE: 20200902
